FAERS Safety Report 18188546 (Version 1)
Quarter: 2020Q3

REPORT INFORMATION
  Report Type: Spontaneous
  Country: ES (occurrence: ES)
  Receive Date: 20200824
  Receipt Date: 20200824
  Transmission Date: 20201103
  Serious: Yes (Other)
  Sender: FDA-Public Use
  Company Number: ES-MYLANLABS-2020M1073699

PATIENT
  Age: 62 Year
  Sex: Male

DRUGS (12)
  1. BEVACIZUMAB. [Suspect]
     Active Substance: BEVACIZUMAB
     Indication: COLORECTAL CANCER METASTATIC
  2. IRINOTECAN [Suspect]
     Active Substance: IRINOTECAN
     Indication: COLORECTAL CANCER STAGE IV
     Dosage: 3 MONTHS OF FURTHER [FOLFIRI] PLUS BEVACIZUMAB
     Route: 065
  3. FLUOROURACIL. [Suspect]
     Active Substance: FLUOROURACIL
     Indication: COLORECTAL CANCER METASTATIC
     Dosage: 3 MONTHS OF FURTHER CHEMOTHERAPY  [FOLFIRI] PLUS BEVACIZUMAB
     Route: 065
  4. OXALIPLATIN. [Suspect]
     Active Substance: OXALIPLATIN
     Indication: COLORECTAL CANCER METASTATIC
     Dosage: SWITCHED BACK TO [FOLFOX] WITH SAME ANTI?VEGFR FOR 8 CYCLES
     Route: 065
  5. FLUOROURACIL. [Suspect]
     Active Substance: FLUOROURACIL
     Dosage: SWITCHED BACK TO [FOLFOX] WITH THE SAME ANTI?VEGFR FOR 8 CYCLES
     Route: 065
  6. OXALIPLATIN. [Suspect]
     Active Substance: OXALIPLATIN
     Indication: COLORECTAL CANCER STAGE IV
     Dosage: 4 CYCLES OF  [FOLFOX]
     Route: 065
  7. FOLINIC ACID [Suspect]
     Active Substance: LEUCOVORIN
     Indication: COLORECTAL CANCER METASTATIC
     Dosage: 3 MONTHS OF FURTHER CHEMOTHERAPY COMPRISING [FOLFIRI] PLUS BEVACIZUMAB
     Route: 065
  8. FLUOROURACIL. [Suspect]
     Active Substance: FLUOROURACIL
     Indication: COLORECTAL CANCER STAGE IV
     Dosage: 4 CYCLES OF  [FOLFOX]
     Route: 065
  9. IRINOTECAN [Suspect]
     Active Substance: IRINOTECAN
     Indication: COLORECTAL CANCER METASTATIC
  10. FOLINIC ACID [Suspect]
     Active Substance: LEUCOVORIN
     Dosage: SWITCHED BACK TO [FOLFOX] WITH THE SAME ANTI?VEGFR FOR 8 CYCLES
     Route: 065
  11. FOLINIC ACID [Suspect]
     Active Substance: LEUCOVORIN
     Indication: COLORECTAL CANCER STAGE IV
     Dosage: 4 CYCLES OF  [FOLFOX]
     Route: 065
  12. BEVACIZUMAB. [Suspect]
     Active Substance: BEVACIZUMAB
     Indication: COLORECTAL CANCER STAGE IV
     Dosage: 3 MONTHS OF FURTHER CHEMOTHERAPY COMPRISING FOLINIC ACID, FLUOROURACIL, AND IRINOTECAN..
     Route: 065

REACTIONS (1)
  - Drug ineffective [Unknown]
